FAERS Safety Report 5330905-9 (Version None)
Quarter: 2007Q2

REPORT INFORMATION
  Report Type: 
  Country: None (occurrence: None)
  Receive Date: 20070516
  Receipt Date: 20070430
  Transmission Date: 20071010
  Serious: Yes (Other)
  Sender: FDA-Public Use
  Company Number: DSA_29843_2007

PATIENT
  Sex: Female

DRUGS (3)
  1. VASOTEC [Suspect]
     Indication: HYPERTENSION
     Dosage: (7.5 MG TID ORAL)
     Route: 048
     Dates: start: 20070425
  2. VASOTEC [Suspect]
     Indication: HYPERTENSION
     Dosage: (7.5 MG TID ORAL)
     Route: 048
     Dates: start: 19870101, end: 20070401
  3. HYDROCHLOROTHIAZIDE [Concomitant]

REACTIONS (4)
  - FEELING ABNORMAL [None]
  - PALPITATIONS [None]
  - PHARMACEUTICAL PRODUCT COMPLAINT [None]
  - TACHYCARDIA [None]
